FAERS Safety Report 24716052 (Version 2)
Quarter: 2024Q4

REPORT INFORMATION
  Report Type: Report from Study
  Country: CA (occurrence: CA)
  Receive Date: 20241210
  Receipt Date: 20241220
  Transmission Date: 20250114
  Serious: Yes (Death, Hospitalization)
  Sender: AMGEN
  Company Number: CA-AMGEN-CANSP2024240571

PATIENT
  Age: 76 Year
  Sex: Female

DRUGS (1)
  1. REPATHA [Suspect]
     Active Substance: EVOLOCUMAB
     Indication: Type IIa hyperlipidaemia
     Dosage: 1 DOSAGE FORM, Q2WK
     Route: 065
     Dates: start: 20171018, end: 20240811

REACTIONS (2)
  - Death [Fatal]
  - Hospitalisation [Unknown]

NARRATIVE: CASE EVENT DATE: 20240811
